FAERS Safety Report 7131264-1 (Version None)
Quarter: 2010Q4

REPORT INFORMATION
  Report Type: 
  Country: None (occurrence: None)
  Receive Date: 20101201
  Receipt Date: 20101119
  Transmission Date: 20110411
  Serious: Yes (Death)
  Sender: FDA-Public Use
  Company Number: JP-PFIZER INC-2010153802

PATIENT
  Age: 78 Year

DRUGS (1)
  1. LYRICA [Suspect]
     Indication: SPINAL COLUMN STENOSIS
     Dosage: 150 MG/DAY
     Route: 048
     Dates: start: 20101116

REACTIONS (1)
  - DEATH [None]
